FAERS Safety Report 24291197 (Version 1)
Quarter: 2024Q3

REPORT INFORMATION
  Report Type: Spontaneous
  Country: US (occurrence: US)
  Receive Date: 20240906
  Receipt Date: 20240906
  Transmission Date: 20241016
  Serious: No
  Sender: LEXICON PHARMACEUTICALS
  Company Number: US-LEX-000440

PATIENT
  Age: 81 Year
  Sex: Female

DRUGS (12)
  1. INPEFA [Suspect]
     Active Substance: SOTAGLIFLOZIN
     Indication: Malignant hypertension
     Dates: end: 202405
  2. ASCORBIC ACID [Concomitant]
     Active Substance: ASCORBIC ACID
     Dosage: STRENGTH: 500 MG
  3. ATORVASTATIN [Concomitant]
     Active Substance: ATORVASTATIN
     Dosage: STRENGTH: 40 MG
  4. B-complex vitamins [Concomitant]
  5. CARVEDILOL [Concomitant]
     Active Substance: CARVEDILOL
     Dosage: STRENGTH: 3.125 MG
  6. CHOLECALCIFEROL [Concomitant]
     Active Substance: CHOLECALCIFEROL
  7. ENTRESTO [Concomitant]
     Active Substance: SACUBITRIL\VALSARTAN
     Dosage: STRENGTH: 24-26 MG
  8. FERROUS SULFATE [Concomitant]
     Active Substance: FERROUS SULFATE
     Dosage: STRENGTH: 325 MG
  9. GABAPENTIN [Concomitant]
     Active Substance: GABAPENTIN
     Dosage: STRENGTH: 600 MG
  10. METFORMIN [Concomitant]
     Active Substance: METFORMIN HYDROCHLORIDE
     Dosage: STRENGTH: 500 MG
  11. PAROXETINE [Concomitant]
     Active Substance: PAROXETINE
     Dosage: STRENGTH: 40 MG
  12. ZOLPIDEM [Concomitant]
     Active Substance: ZOLPIDEM TARTRATE
     Dosage: STRENGTH: 10 MG

REACTIONS (1)
  - Fungal infection [Not Recovered/Not Resolved]

NARRATIVE: CASE EVENT DATE: 20240501
